FAERS Safety Report 26044359 (Version 1)
Quarter: 2025Q4

REPORT INFORMATION
  Report Type: Spontaneous
  Country: US (occurrence: US)
  Receive Date: 20251114
  Receipt Date: 20251114
  Transmission Date: 20260117
  Serious: Yes (Hospitalization, Other)
  Sender: ASTELLAS
  Company Number: US-ASTELLAS-2025-AER-062482

PATIENT
  Sex: Female

DRUGS (13)
  1. TACROLIMUS [Suspect]
     Active Substance: TACROLIMUS
     Indication: Pancreas transplant
     Route: 065
  2. TACROLIMUS [Suspect]
     Active Substance: TACROLIMUS
     Dosage: 2 MG IN THE MORNING AND 1.5 MG AT NIGHT
     Route: 065
  3. TACROLIMUS [Suspect]
     Active Substance: TACROLIMUS
     Dosage: DE-ESCALATED DURING THE COURSE OF HER HOSPITAL STAY.
     Route: 065
  4. MYCOPHENOLATE MOFETIL [Concomitant]
     Active Substance: MYCOPHENOLATE MOFETIL
     Indication: Pancreas transplant
     Route: 065
  5. MYCOPHENOLATE MOFETIL [Concomitant]
     Active Substance: MYCOPHENOLATE MOFETIL
     Route: 065
  6. MYCOPHENOLATE MOFETIL [Concomitant]
     Active Substance: MYCOPHENOLATE MOFETIL
     Dosage: DE-ESCALATED DURING THE COURSE OF HER HOSPITAL STAY, DISCONTINUED
     Route: 065
  7. PREDNISONE [Concomitant]
     Active Substance: PREDNISONE
     Indication: Pancreas transplant
     Dosage: TAPER
     Route: 065
  8. PREDNISONE [Concomitant]
     Active Substance: PREDNISONE
     Route: 065
  9. PREDNISONE [Concomitant]
     Active Substance: PREDNISONE
     Route: 065
  10. PREDNISONE [Concomitant]
     Active Substance: PREDNISONE
     Dosage: DE-ESCALATED DURING THE COURSE OF HER HOSPITAL STAY
     Route: 065
  11. PREDNISONE [Concomitant]
     Active Substance: PREDNISONE
     Dosage: DOSE WAS INCREASED
     Route: 065
  12. PREDNISONE [Concomitant]
     Active Substance: PREDNISONE
     Dosage: ADJUSTED PERIODICALLY BY THE KIDNEY TRANSPLANT TEAM BASED ON CLINICAL STATUS AND LABORATORY FINDINGS
     Route: 065
  13. antithymocyte globulin-thymoglobulin [Concomitant]
     Indication: Pancreas transplant
     Route: 065

REACTIONS (11)
  - Opportunistic infection [Unknown]
  - Nocardiosis [Unknown]
  - Enterococcal infection [Unknown]
  - Urinary tract infection [Unknown]
  - Staphylococcal infection [Unknown]
  - Candida infection [Unknown]
  - Pneumonia [Unknown]
  - Herpes simplex pneumonia [Unknown]
  - End stage renal disease [Unknown]
  - Toxicity to various agents [Unknown]
  - Off label use [Unknown]
